FAERS Safety Report 17432996 (Version 2)
Quarter: 2020Q1

REPORT INFORMATION
  Report Type: Report from Study
  Country: None (occurrence: DE)
  Receive Date: 20200219
  Receipt Date: 20200328
  Transmission Date: 20200409
  Serious: Yes (Hospitalization, Other)
  Sender: FDA-Public Use
  Company Number: DE-ABBVIE-20K-062-3280899-00

PATIENT
  Age: 79 Year
  Sex: Female

DRUGS (6)
  1. VITAMIN B12 [Concomitant]
     Active Substance: CYANOCOBALAMIN
     Indication: PRODUCT USED FOR UNKNOWN INDICATION
  2. FOLSAN [Concomitant]
     Active Substance: FOLIC ACID
     Indication: PRODUCT USED FOR UNKNOWN INDICATION
  3. MOVICOL [Concomitant]
     Active Substance: POLYETHYLENE GLYCOL 3350\POTASSIUM CHLORIDE\SODIUM BICARBONATE\SODIUM CHLORIDE
     Indication: PRODUCT USED FOR UNKNOWN INDICATION
     Dosage: SACHET
  4. DUODOPA [Suspect]
     Active Substance: CARBIDOPA\LEVODOPA
     Indication: PARKINSON^S DISEASE
     Dosage: MD 8.2 ML; CRD 5.2 ML/H; ED 5 ML
     Route: 050
     Dates: start: 20200203
  5. EUTHYROX [Concomitant]
     Active Substance: LEVOTHYROXINE SODIUM
     Indication: PRODUCT USED FOR UNKNOWN INDICATION
  6. TELMISARTAN. [Concomitant]
     Active Substance: TELMISARTAN
     Indication: PRODUCT USED FOR UNKNOWN INDICATION

REACTIONS (6)
  - Gastric perforation [Not Recovered/Not Resolved]
  - Peritonitis [Not Recovered/Not Resolved]
  - Gastric haemorrhage [Not Recovered/Not Resolved]
  - Peritonitis [Not Recovered/Not Resolved]
  - Haemorrhage [Not Recovered/Not Resolved]
  - Gastric perforation [Not Recovered/Not Resolved]

NARRATIVE: CASE EVENT DATE: 20200214
